FAERS Safety Report 20244656 (Version 1)
Quarter: 2021Q4

REPORT INFORMATION
  Report Type: Spontaneous
  Country: US (occurrence: US)
  Receive Date: 20211229
  Receipt Date: 20211229
  Transmission Date: 20220303
  Serious: No
  Sender: FDA-Public Use
  Company Number: US-CELLTRION INC.-2021US015216

PATIENT

DRUGS (2)
  1. TRUXIMA [Suspect]
     Active Substance: RITUXIMAB-ABBS
     Indication: Nodular lymphocyte predominant Hodgkin lymphoma
     Dosage: 926 MILLIGRAM
     Dates: start: 20211109
  2. TRUXIMA [Suspect]
     Active Substance: RITUXIMAB-ABBS
     Dosage: 926 MILLIGRAM
     Dates: start: 20211110

REACTIONS (1)
  - Off label use [Unknown]
